FAERS Safety Report 8777784 (Version 2)
Quarter: 2013Q1

REPORT INFORMATION
  Report Type: Spontaneous
  Country: BR (occurrence: BR)
  Receive Date: 20120911
  Receipt Date: 20130226
  Transmission Date: 20140127
  Serious: Yes (Other)
  Sender: FDA-Public Use
  Company Number: PHHY2012BR077977

PATIENT
  Sex: Male

DRUGS (5)
  1. SANDOSTATIN LAR [Suspect]
     Dosage: UNK UKN, UNK
  2. SANDOSTATIN LAR [Suspect]
     Dosage: 20 MG, UNK
     Dates: start: 201107
  3. SANDOSTATIN LAR [Suspect]
     Dosage: 20 MG, 1 INJECTION, EACH 28 DAYS
     Route: 030
     Dates: start: 201010
  4. CABERGOLINE [Concomitant]
     Indication: HORMONE SUPPRESSION THERAPY
     Dosage: 6 DF, WEEKLY
     Route: 048
  5. PURAN T4 [Concomitant]
     Indication: THYROID DISORDER
     Dosage: 1 DF, DAILY
     Route: 048
     Dates: start: 201210

REACTIONS (5)
  - Memory impairment [Recovering/Resolving]
  - Amnesia [Recovering/Resolving]
  - Myalgia [Recovering/Resolving]
  - Pain in extremity [Recovering/Resolving]
  - Fatigue [Recovering/Resolving]
